FAERS Safety Report 4718720-8 (Version None)
Quarter: 2005Q3

REPORT INFORMATION
  Report Type: 
  Country: None (occurrence: None)
  Receive Date: 20050719
  Receipt Date: 20050708
  Transmission Date: 20060218
  Serious: Yes (Hospitalization, Other)
  Sender: FDA-Public Use
  Company Number: KII-2005-0017508

PATIENT
  Age: 46 Year
  Sex: Female

DRUGS (4)
  1. OXYCONTIN [Suspect]
     Dosage: ORAL
     Route: 048
  2. ACETAMINOPHEN AND HYDROCODONE BITARTRATE [Suspect]
     Dosage: ORAL
     Route: 048
  3. BENZODIAZEPINE DERIVATIVES ( ) [Suspect]
     Dosage: SEE TEXT, ORAL
     Route: 048
  4. ASPIRIN [Suspect]

REACTIONS (10)
  - BUNDLE BRANCH BLOCK [None]
  - COMA [None]
  - DRUG LEVEL ABOVE THERAPEUTIC [None]
  - DRUG SCREEN POSITIVE [None]
  - HYPOTENSION [None]
  - MIOSIS [None]
  - MUSCULOSKELETAL STIFFNESS [None]
  - RESPIRATORY DEPRESSION [None]
  - SEDATION [None]
  - SOMNOLENCE [None]
